FAERS Safety Report 23852604 (Version 3)
Quarter: 2025Q4

REPORT INFORMATION
  Report Type: Spontaneous
  Country: US (occurrence: US)
  Receive Date: 20240514
  Receipt Date: 20251113
  Transmission Date: 20260118
  Serious: No
  Sender: ALIMERA
  Company Number: US-ALIMERA SCIENCES INC.-US-A16013-24-000113

PATIENT
  Age: 65 Year
  Sex: Male

DRUGS (1)
  1. ILUVIEN [Suspect]
     Active Substance: FLUOCINOLONE ACETONIDE
     Indication: Diabetic retinal oedema
     Dosage: 0.25 MICROGRAM, QD - LEFT EYE
     Route: 031

REACTIONS (4)
  - Conjunctival haemorrhage [Unknown]
  - Needle issue [Unknown]
  - Device difficult to use [Unknown]
  - Device dispensing error [Unknown]

NARRATIVE: CASE EVENT DATE: 20240126
